FAERS Safety Report 18143338 (Version 2)
Quarter: 2020Q3

REPORT INFORMATION
  Report Type: Spontaneous
  Country: US (occurrence: US)
  Receive Date: 20200812
  Receipt Date: 20200827
  Transmission Date: 20201103
  Serious: Yes (Death, Other)
  Sender: FDA-Public Use
  Company Number: US-GILEAD-2020-0489779

PATIENT
  Age: 56 Year
  Sex: Male
  Weight: 113.3 kg

DRUGS (6)
  1. CISATRACURIUM. [Concomitant]
     Active Substance: CISATRACURIUM
     Dosage: UNK
     Route: 065
     Dates: start: 20200711, end: 20200725
  2. MIDAZOLAM. [Concomitant]
     Active Substance: MIDAZOLAM
     Dosage: UNK
     Route: 042
     Dates: start: 20200702, end: 20200725
  3. NOREPINEPHRINE. [Concomitant]
     Active Substance: NOREPINEPHRINE
     Dosage: UNK
     Route: 065
     Dates: start: 20200712, end: 20200725
  4. REMDESIVIR. [Suspect]
     Active Substance: REMDESIVIR
     Indication: COVID-19
     Dosage: 100 MG, QD
     Route: 042
     Dates: start: 20200702, end: 20200711
  5. FENTANYL. [Concomitant]
     Active Substance: FENTANYL
     Dosage: UNK
     Route: 042
     Dates: start: 20200701, end: 20200725
  6. NAFCILLIN [Concomitant]
     Active Substance: NAFCILLIN SODIUM
     Dosage: UNK
     Route: 065
     Dates: start: 20200717, end: 20200723

REACTIONS (7)
  - Respiratory failure [Fatal]
  - Shock [Unknown]
  - Liver disorder [Unknown]
  - Septic shock [Fatal]
  - Acute kidney injury [Fatal]
  - Staphylococcal bacteraemia [Unknown]
  - Oxygen saturation abnormal [Unknown]

NARRATIVE: CASE EVENT DATE: 202007
